FAERS Safety Report 17475494 (Version 1)
Quarter: 2020Q1

REPORT INFORMATION
  Report Type: Report from Study
  Country: CA (occurrence: CA)
  Receive Date: 20200228
  Receipt Date: 20200228
  Transmission Date: 20200409
  Serious: Yes (Other)
  Sender: FDA-Public Use
  Company Number: CA-JNJFOC-20190401525

PATIENT
  Age: 81 Year
  Sex: Female

DRUGS (3)
  1. STELARA [Suspect]
     Active Substance: USTEKINUMAB
     Dosage: STRENGTH = 90 MG
     Route: 058
  2. STELARA [Suspect]
     Active Substance: USTEKINUMAB
     Indication: CROHN^S DISEASE
     Route: 058
     Dates: start: 20181207
  3. STELARA [Suspect]
     Active Substance: USTEKINUMAB
     Route: 058
     Dates: start: 20190410

REACTIONS (8)
  - Crohn^s disease [Unknown]
  - Rash [Recovered/Resolved]
  - Product use issue [Unknown]
  - Localised infection [Recovering/Resolving]
  - Diabetes mellitus [Unknown]
  - Off label use [Unknown]
  - Sinusitis [Recovered/Resolved]
  - Root canal infection [Not Recovered/Not Resolved]

NARRATIVE: CASE EVENT DATE: 2019
